FAERS Safety Report 23842040 (Version 1)
Quarter: 2024Q2

REPORT INFORMATION
  Report Type: Spontaneous
  Country: GB (occurrence: GB)
  Receive Date: 20240510
  Receipt Date: 20240510
  Transmission Date: 20240716
  Serious: Yes (Other)
  Sender: FDA-Public Use
  Company Number: None

PATIENT
  Age: 70 Year
  Sex: Male
  Weight: 110 kg

DRUGS (18)
  1. SPIRONOLACTONE [Suspect]
     Active Substance: SPIRONOLACTONE
     Dosage: ONE TO BE TAKEN EACH DAY - BLOOD TEST EVERY 6 M...
     Dates: start: 20240221
  2. AMOXICILLIN [Concomitant]
     Active Substance: AMOXICILLIN
     Dosage: ONE TO BE TAKEN THREE TIMES A DAY
     Dates: start: 20240212, end: 20240312
  3. BISOPROLOL [Concomitant]
     Active Substance: BISOPROLOL\BISOPROLOL FUMARATE
     Dosage: ONE TO BE TAKEN EACH DAY
     Dates: start: 20231016
  4. BUMETANIDE [Concomitant]
     Active Substance: BUMETANIDE
     Dosage: TWO TABLETS IN THE MORNING AND ONE AT LUNCHTIM ...
     Dates: start: 20231016
  5. CANDESARTAN [Concomitant]
     Active Substance: CANDESARTAN
     Dosage: ONE TO BE TAKEN EACH DAY
     Dates: start: 20231016
  6. CITALOPRAM [Concomitant]
     Active Substance: CITALOPRAM\CITALOPRAM HYDROBROMIDE
     Dosage: TAKE ONE DAILY
     Dates: start: 20231016
  7. COCODAMOL [Concomitant]
     Active Substance: ACETAMINOPHEN\CODEINE PHOSPHATE
     Dosage: ONE OR TWO TO BE TAKEN UP TO FOUR TIMES A DAY W...
     Dates: start: 20231016
  8. DOXYCYCLINE [Concomitant]
     Active Substance: DOXYCYCLINE
     Dosage: TWO TO BE TAKEN ON THE FIRST DAY THEN ONE TO BE...
     Dates: start: 20240206, end: 20240320
  9. FERROUS GLUCONATE [Concomitant]
     Active Substance: FERROUS GLUCONATE
     Dosage: ONE TO BE TAKEN TWICE A DAY BEFORE FOOD
     Dates: start: 20231016
  10. GABAPENTIN [Concomitant]
     Active Substance: GABAPENTIN
     Dosage: ONE TO TWO TABLETS TO BE TAKEN UP TO THREE TIME...
     Dates: start: 20231016
  11. IBUPROFEN [Concomitant]
     Active Substance: IBUPROFEN
     Dosage: APPLY 3-4 TIMES/DAY
     Dates: start: 20240426
  12. EDOXABAN TOSYLATE [Concomitant]
     Active Substance: EDOXABAN TOSYLATE
     Indication: Anticoagulant therapy
     Dosage: ONE TO BE TAKEN EACH DAY **BLOOD THINNER** CARR...
     Dates: start: 20231016
  13. NITROFURANTOIN [Concomitant]
     Active Substance: NITROFURANTOIN
     Dosage: ONE AT NIGHT
     Dates: start: 20240122
  14. OMEPRAZOLE [Concomitant]
     Active Substance: DONEPEZIL HYDROCHLORIDE\OMEPRAZOLE\OMEPRAZOLE MAGNESIUM
     Dosage: ONE TO BE TAKEN ONCE DAILY
     Dates: start: 20231016
  15. PREDNISOLONE [Concomitant]
     Active Substance: PREDNISOLONE
     Dosage: SIX TO BE TAKEN EACH DAY
     Dates: start: 20240206, end: 20240306
  16. ALBUTEROL [Concomitant]
     Active Substance: ALBUTEROL
     Dosage: SEE ADMINISTRATIVE NOTES FOR DOSAGE.
     Dates: start: 20231016
  17. TAMSULOSIN HYDROCHLORIDE [Concomitant]
     Active Substance: TAMSULOSIN HYDROCHLORIDE
     Dosage: ONE TO BE TAKEN EACH DAY AT BED TIME
     Dates: start: 20231016
  18. BECLOMETHASONE DIPROPIONATE\FORMOTEROL FUMARATE\GLYCOPYRROLATE [Concomitant]
     Active Substance: BECLOMETHASONE DIPROPIONATE\FORMOTEROL FUMARATE\GLYCOPYRROLATE
     Dosage: TWO PUFFS TO BE INHALED TWICE A DAY
     Dates: start: 20231016

REACTIONS (1)
  - Pruritus [Not Recovered/Not Resolved]
